FAERS Safety Report 25149160 (Version 2)
Quarter: 2025Q2

REPORT INFORMATION
  Report Type: Spontaneous
  Country: US (occurrence: US)
  Receive Date: 20250402
  Receipt Date: 20250529
  Transmission Date: 20250716
  Serious: No
  Sender: SANDOZ
  Company Number: US-SANDOZ-SDZ2025US018662

PATIENT
  Sex: Female

DRUGS (1)
  1. ESTRADIOL [Suspect]
     Active Substance: ESTRADIOL
     Indication: Product used for unknown indication
     Route: 065

REACTIONS (4)
  - Nervousness [Unknown]
  - Poor quality product administered [Unknown]
  - Product adhesion issue [Unknown]
  - Product quality issue [Unknown]
